FAERS Safety Report 7702401-2 (Version None)
Quarter: 2011Q3

REPORT INFORMATION
  Report Type: 
  Country: None (occurrence: None)
  Receive Date: 20110822
  Receipt Date: 20110811
  Transmission Date: 20111222
  Serious: Yes (Other)
  Sender: FDA-Public Use
  Company Number: PHHY2011FR72285

PATIENT
  Age: 53 Year
  Sex: Female

DRUGS (5)
  1. VALACICLOVIR [Concomitant]
     Indication: PRECURSOR T-LYMPHOBLASTIC LYMPHOMA/LEUKAEMIA
  2. METHOTREXATE [Suspect]
     Indication: PRECURSOR T-LYMPHOBLASTIC LYMPHOMA/LEUKAEMIA
     Dosage: 3000 MG/M2, UNK
  3. METHOTREXATE [Interacting]
     Dosage: 5040 MG, UNK
  4. PANTOPRAZOLE [Interacting]
     Dosage: 20 MG, DAILY
  5. FLUOXETINE [Concomitant]
     Indication: PRECURSOR T-LYMPHOBLASTIC LYMPHOMA/LEUKAEMIA

REACTIONS (4)
  - DRUG INTERACTION [None]
  - DRUG LEVEL INCREASED [None]
  - RENAL FAILURE [None]
  - BLOOD CREATININE INCREASED [None]
